FAERS Safety Report 21026876 (Version 1)
Quarter: 2022Q2

REPORT INFORMATION
  Report Type: Spontaneous
  Country: AU (occurrence: AU)
  Receive Date: 20220630
  Receipt Date: 20220630
  Transmission Date: 20220721
  Serious: Yes (Other)
  Sender: FDA-Public Use
  Company Number: AU-MYLANLABS-2022M1048816

PATIENT
  Age: 57 Year
  Sex: Male

DRUGS (1)
  1. ZOLEDRONIC ACID [Suspect]
     Active Substance: ZOLEDRONIC ACID
     Indication: Drug therapy
     Dosage: UNK
     Route: 065

REACTIONS (3)
  - Osteonecrosis of jaw [Recovering/Resolving]
  - Oral cavity fistula [Unknown]
  - Fistula [Unknown]
